FAERS Safety Report 15720037 (Version 1)
Quarter: 2018Q4

REPORT INFORMATION
  Report Type: Report from Study
  Country: US (occurrence: US)
  Receive Date: 20181213
  Receipt Date: 20181213
  Transmission Date: 20190205
  Serious: Yes (Hospitalization)
  Sender: FDA-Public Use
  Company Number: US-BAYER-2018-228534

PATIENT
  Age: 80 Year
  Sex: Male
  Weight: 83.9 kg

DRUGS (2)
  1. ADEMPAS [Suspect]
     Active Substance: RIOCIGUAT
     Indication: PULMONARY ARTERIAL HYPERTENSION
     Dosage: 0.5 MG, TID
     Dates: start: 20180906, end: 201811
  2. APIXABAN [Concomitant]
     Active Substance: APIXABAN
     Dosage: UNK

REACTIONS (5)
  - Rehabilitation therapy [None]
  - Product dose omission [None]
  - Hypotension [None]
  - Hospitalisation [None]
  - Hospice care [None]

NARRATIVE: CASE EVENT DATE: 2018
